FAERS Safety Report 19983332 (Version 1)
Quarter: 2021Q4

REPORT INFORMATION
  Report Type: Spontaneous
  Country: US (occurrence: US)
  Receive Date: 20211021
  Receipt Date: 20211021
  Transmission Date: 20220304
  Serious: Yes (Other)
  Sender: FDA-Public Use
  Company Number: US-AMGEN-USASP2021158067

PATIENT
  Age: 73 Year
  Sex: Female

DRUGS (5)
  1. PROLIA [Suspect]
     Active Substance: DENOSUMAB
     Indication: Osteoporosis postmenopausal
     Dosage: UNK
     Route: 065
     Dates: start: 202104
  2. LOSARTAN [Concomitant]
     Active Substance: LOSARTAN
     Indication: Blood pressure abnormal
     Dosage: 25 MILLIGRAM
  3. ROSUVASTATIN [Concomitant]
     Active Substance: ROSUVASTATIN
     Indication: Blood cholesterol abnormal
     Dosage: UNK
     Dates: start: 202104
  4. TYLENOL [Concomitant]
     Active Substance: ACETAMINOPHEN
  5. MODERNA COVID-19 VACCINE [Concomitant]
     Active Substance: CX-024414

REACTIONS (9)
  - Oesophageal ulcer [Unknown]
  - Sleep disorder due to a general medical condition [Unknown]
  - Temporomandibular joint syndrome [Unknown]
  - Intervertebral disc protrusion [Not Recovered/Not Resolved]
  - Tooth fracture [Unknown]
  - Arthritis [Unknown]
  - Anxiety [Unknown]
  - Cystitis [Unknown]
  - Sciatica [Unknown]

NARRATIVE: CASE EVENT DATE: 20210901
